FAERS Safety Report 11364499 (Version 1)
Quarter: 2015Q3

REPORT INFORMATION
  Report Type: Spontaneous
  Country: US (occurrence: US)
  Receive Date: 20150811
  Receipt Date: 20150811
  Transmission Date: 20151125
  Serious: No
  Sender: FDA-Public Use
  Company Number: US-PFIZER INC-2015264510

PATIENT
  Age: 32 Year
  Sex: Male
  Weight: 86 kg

DRUGS (3)
  1. NORCO [Concomitant]
     Active Substance: ACETAMINOPHEN\HYDROCODONE BITARTRATE
     Indication: HEADACHE
     Dosage: ONE EVERY FOUR TO SIX HOURS AS NEEDED
  2. ASPIRIN. [Concomitant]
     Active Substance: ASPIRIN
     Dosage: 325 MG, DAILY
  3. ATORVASTATIN CALCIUM. [Suspect]
     Active Substance: ATORVASTATIN CALCIUM
     Indication: BLOOD CHOLESTEROL INCREASED
     Dosage: UNK
     Dates: start: 20150804

REACTIONS (6)
  - Somnolence [Unknown]
  - Fatigue [Unknown]
  - Muscular weakness [Unknown]
  - Personality change [Unknown]
  - Sexual dysfunction [Unknown]
  - Irritability [Unknown]

NARRATIVE: CASE EVENT DATE: 20150804
